FAERS Safety Report 19893802 (Version 1)
Quarter: 2021Q3

REPORT INFORMATION
  Report Type: Spontaneous
  Country: US (occurrence: US)
  Receive Date: 20210929
  Receipt Date: 20210929
  Transmission Date: 20211014
  Serious: No
  Sender: FDA-Public Use
  Company Number: US-DRREDDYS-SPO/USA/21/0141476

PATIENT
  Age: 39 Year
  Sex: Female

DRUGS (1)
  1. ZENATANE [Suspect]
     Active Substance: ISOTRETINOIN
     Indication: PRODUCT USED FOR UNKNOWN INDICATION
     Dosage: RMA ISSUE DATE: 05 JANUARY 2021 5:11:21 PM, 06 JANUARY 2021 3:40:01 PM, 12 FEBRUARY 2021 3:48:57 PM,
     Dates: start: 20210105, end: 20210806

REACTIONS (1)
  - Adverse drug reaction [Unknown]
